FAERS Safety Report 9705703 (Version 1)
Quarter: 2013Q4

REPORT INFORMATION
  Report Type: Spontaneous
  Country: US (occurrence: US)
  Receive Date: 20131122
  Receipt Date: 20131122
  Transmission Date: 20140711
  Serious: Yes (Death, Other)
  Sender: FDA-Public Use
  Company Number: US-ASTRAZENECA-2013SE85765

PATIENT
  Age: 87 Year
  Sex: Female

DRUGS (3)
  1. BRILINTA [Suspect]
     Route: 048
     Dates: end: 2013
  2. COUMADIN [Concomitant]
  3. ASPIRIN [Concomitant]

REACTIONS (2)
  - Death [Fatal]
  - Haemorrhage [Unknown]
